FAERS Safety Report 20740498 (Version 1)
Quarter: 2022Q2

REPORT INFORMATION
  Report Type: Spontaneous
  Country: US (occurrence: US)
  Receive Date: 20220422
  Receipt Date: 20220422
  Transmission Date: 20220721
  Serious: Yes (Hospitalization, Other)
  Sender: FDA-Public Use
  Company Number: US-OTSUKA-2022_024279

PATIENT
  Age: 81 Year
  Sex: Female
  Weight: 65.77 kg

DRUGS (1)
  1. SAMSCA [Suspect]
     Active Substance: TOLVAPTAN
     Indication: Blood sodium decreased
     Dosage: 15 MG ONCE DAY
     Route: 065

REACTIONS (8)
  - Head injury [Unknown]
  - Rehabilitation therapy [Unknown]
  - Fall [Recovered/Resolved]
  - Blood sodium decreased [Not Recovered/Not Resolved]
  - Feeling abnormal [Unknown]
  - Dizziness [Unknown]
  - Therapy interrupted [Unknown]
  - Incorrect product administration duration [Unknown]

NARRATIVE: CASE EVENT DATE: 20220402
